FAERS Safety Report 23868679 (Version 1)
Quarter: 2024Q2

REPORT INFORMATION
  Report Type: Spontaneous
  Country: PT (occurrence: PT)
  Receive Date: 20240517
  Receipt Date: 20240517
  Transmission Date: 20240716
  Serious: Yes (Hospitalization, Other)
  Sender: FDA-Public Use
  Company Number: PT-EMA-DD-20230329-7185823-100730

PATIENT
  Age: 37 Year
  Sex: Male

DRUGS (6)
  1. BENDAMUSTINE [Suspect]
     Active Substance: BENDAMUSTINE
     Indication: Hodgkin^s disease nodular sclerosis
     Dosage: CYCLIC (4 CYCLES)
     Route: 042
  2. DACARBAZINE [Suspect]
     Active Substance: DACARBAZINE
     Indication: Hodgkin^s disease nodular sclerosis
     Route: 050
     Dates: start: 202108
  3. ADRIAMYCIN [Suspect]
     Active Substance: DOXORUBICIN HYDROCHLORIDE
     Indication: Hodgkin^s disease
     Dosage: TIME INTERVAL: 1 CYCLICAL: UNK UNK, CYCLIC
     Route: 065
     Dates: start: 202108
  4. BLEOMYCIN [Suspect]
     Active Substance: BLEOMYCIN SULFATE
     Indication: Hodgkin^s disease
     Dosage: TIME INTERVAL: 1 CYCLICAL: UNK, QCY (INJECTION)
     Route: 050
     Dates: start: 202108
  5. VINBLASTINE [Suspect]
     Active Substance: VINBLASTINE
     Indication: Hodgkin^s disease
     Route: 065
     Dates: start: 202205
  6. VINBLASTINE [Suspect]
     Active Substance: VINBLASTINE
     Indication: Hodgkin^s disease
     Dosage: TIME INTERVAL: 1 CYCLICAL: UNK UNK, CYCLIC
     Route: 065
     Dates: start: 202108

REACTIONS (5)
  - Toxic epidermal necrolysis [Recovered/Resolved]
  - Off label use [Unknown]
  - Asthenia [Unknown]
  - Nausea [Unknown]
  - Stevens-Johnson syndrome [Recovered/Resolved]

NARRATIVE: CASE EVENT DATE: 20210101
